FAERS Safety Report 8510854-5 (Version None)
Quarter: 2012Q3

REPORT INFORMATION
  Report Type: 
  Country: None (occurrence: None)
  Receive Date: 20120716
  Receipt Date: 20120709
  Transmission Date: 20120928
  Serious: Yes (Death)
  Sender: FDA-Public Use
  Company Number: VE-ELI_LILLY_AND_COMPANY-VE201207003379

PATIENT
  Age: 80 Year
  Sex: Female

DRUGS (5)
  1. HUMALOG MIX 75/25 [Suspect]
     Dosage: 32 U, EACH EVENING
     Dates: start: 20120509
  2. HUMULIN 70/30 [Suspect]
     Dosage: 10 U, EACH MORNING
     Dates: start: 20120601
  3. HUMULIN 70/30 [Suspect]
     Dosage: 10 U, EACH EVENING
     Dates: start: 20120601
  4. HUMALOG MIX 75/25 [Suspect]
     Dosage: 32 U, EACH MORNING
     Dates: start: 20120509
  5. HUMALOG [Suspect]
     Dosage: 5 U, QD
     Dates: start: 20120509

REACTIONS (3)
  - RENAL FAILURE CHRONIC [None]
  - HYPERTENSIVE CRISIS [None]
  - HYPERGLYCAEMIA [None]
